FAERS Safety Report 8479772-5 (Version None)
Quarter: 2012Q2

REPORT INFORMATION
  Report Type: 
  Country: None (occurrence: None)
  Receive Date: 20120629
  Receipt Date: 20120619
  Transmission Date: 20120825
  Serious: Yes (Other)
  Sender: FDA-Public Use
  Company Number: US-ABBOTT-12P-163-0948904-00

PATIENT
  Age: 55 Year
  Sex: Female

DRUGS (3)
  1. METHOTREXATE [Concomitant]
     Indication: RHEUMATOID ARTHRITIS
  2. HUMIRA [Suspect]
     Route: 058
     Dates: start: 20120113, end: 20120315
  3. HUMIRA [Suspect]
     Indication: RHEUMATOID ARTHRITIS
     Route: 058
     Dates: start: 20030101, end: 20120101

REACTIONS (10)
  - BIOPSY LUNG ABNORMAL [None]
  - COUGH [None]
  - ARTHRALGIA [None]
  - OXYGEN SATURATION DECREASED [None]
  - PULMONARY FUNCTION TEST DECREASED [None]
  - LOWER RESPIRATORY TRACT INFLAMMATION [None]
  - FOREIGN BODY REACTION [None]
  - GRANULOMA [None]
  - DYSPNOEA [None]
  - BRONCHOPNEUMONIA [None]
